FAERS Safety Report 11188656 (Version 5)
Quarter: 2016Q2

REPORT INFORMATION
  Report Type: Report from Study
  Country: US (occurrence: US)
  Receive Date: 20150615
  Receipt Date: 20160606
  Transmission Date: 20160815
  Serious: Yes (Hospitalization)
  Sender: FDA-Public Use
  Company Number: US-ROCHE-1563697

PATIENT
  Age: 30 Year
  Sex: Female
  Weight: 123.67 kg

DRUGS (28)
  1. OMALIZUMAB [Suspect]
     Active Substance: OMALIZUMAB
     Dosage: 2ND TRIMESTER
     Route: 058
     Dates: start: 20141211
  2. OMALIZUMAB [Suspect]
     Active Substance: OMALIZUMAB
     Route: 058
     Dates: start: 20151217
  3. OMALIZUMAB [Suspect]
     Active Substance: OMALIZUMAB
     Dosage: 3RD TRIMESTER
     Route: 058
     Dates: start: 20150311
  4. OMALIZUMAB [Suspect]
     Active Substance: OMALIZUMAB
     Route: 058
     Dates: start: 20140421
  5. OMALIZUMAB [Suspect]
     Active Substance: OMALIZUMAB
     Route: 058
     Dates: start: 20150506
  6. OMALIZUMAB [Suspect]
     Active Substance: OMALIZUMAB
     Route: 058
     Dates: start: 20151022
  7. OMALIZUMAB [Suspect]
     Active Substance: OMALIZUMAB
     Route: 058
     Dates: start: 20160216
  8. OMALIZUMAB [Suspect]
     Active Substance: OMALIZUMAB
     Route: 058
     Dates: start: 20160510
  9. NEXIUM [Concomitant]
     Active Substance: ESOMEPRAZOLE MAGNESIUM
     Indication: DYSPEPSIA
  10. OMALIZUMAB [Suspect]
     Active Substance: OMALIZUMAB
     Route: 058
     Dates: start: 20150603
  11. ZANTAC [Concomitant]
     Active Substance: RANITIDINE HYDROCHLORIDE
     Indication: DYSPEPSIA
  12. OMALIZUMAB [Suspect]
     Active Substance: OMALIZUMAB
     Dosage: 1ST TRIMESTER
     Route: 058
     Dates: start: 20141015
  13. OMALIZUMAB [Suspect]
     Active Substance: OMALIZUMAB
     Dosage: 2ND TRIMESTER
     Route: 058
     Dates: start: 20141114
  14. OMALIZUMAB [Suspect]
     Active Substance: OMALIZUMAB
     Dosage: 2ND TRIMESTER
     Route: 058
     Dates: start: 20150211
  15. OMALIZUMAB [Suspect]
     Active Substance: OMALIZUMAB
     Route: 058
     Dates: start: 20150729
  16. OMALIZUMAB [Suspect]
     Active Substance: OMALIZUMAB
     Route: 058
     Dates: start: 20160315
  17. OMALIZUMAB [Suspect]
     Active Substance: OMALIZUMAB
     Indication: CHRONIC SPONTANEOUS URTICARIA
     Dosage: 8 WEEKS PRIOR TO CONCEPTION
     Route: 058
     Dates: start: 20140715
  18. OMALIZUMAB [Suspect]
     Active Substance: OMALIZUMAB
     Dosage: 1ST TRIMESTER
     Route: 058
     Dates: start: 20140917
  19. OMALIZUMAB [Suspect]
     Active Substance: OMALIZUMAB
     Dosage: 2ND TRIMESTER
     Route: 058
     Dates: start: 20150114
  20. OMALIZUMAB [Suspect]
     Active Substance: OMALIZUMAB
     Dosage: 3RD TRIMESTER
     Route: 058
     Dates: start: 20150408
  21. OMALIZUMAB [Suspect]
     Active Substance: OMALIZUMAB
     Route: 058
     Dates: start: 20150826
  22. OMALIZUMAB [Suspect]
     Active Substance: OMALIZUMAB
     Route: 058
     Dates: start: 20151119
  23. IBUPROFEN. [Concomitant]
     Active Substance: IBUPROFEN
     Indication: PROCEDURAL PAIN
     Route: 065
     Dates: start: 201505
  24. OMALIZUMAB [Suspect]
     Active Substance: OMALIZUMAB
     Indication: ASTHMA
     Dosage: 1ST TRIMESTER
     Route: 058
     Dates: start: 20140815
  25. OMALIZUMAB [Suspect]
     Active Substance: OMALIZUMAB
     Route: 058
     Dates: start: 20150701
  26. OMALIZUMAB [Suspect]
     Active Substance: OMALIZUMAB
     Route: 058
     Dates: start: 20150923
  27. OMALIZUMAB [Suspect]
     Active Substance: OMALIZUMAB
     Route: 058
     Dates: start: 20160119
  28. OMALIZUMAB [Suspect]
     Active Substance: OMALIZUMAB
     Route: 058
     Dates: start: 20160415

REACTIONS (4)
  - Failed induction of labour [Recovered/Resolved]
  - Maternal exposure during pregnancy [Unknown]
  - Blood iron decreased [Unknown]
  - Incision site infection [Unknown]

NARRATIVE: CASE EVENT DATE: 20150520
